FAERS Safety Report 19073575 (Version 1)
Quarter: 2021Q1

REPORT INFORMATION
  Report Type: Spontaneous
  Country: US (occurrence: US)
  Receive Date: 20210330
  Receipt Date: 20210330
  Transmission Date: 20210420
  Serious: Yes (Other)
  Sender: FDA-Public Use
  Company Number: US-PFIZER INC-2021298804

PATIENT
  Age: 69 Year
  Sex: Female
  Weight: 104.33 kg

DRUGS (2)
  1. TAMBOCOR [Concomitant]
     Active Substance: FLECAINIDE ACETATE
     Indication: HEART RATE INCREASED
     Dosage: 150 MG, DAILY (100 IN THE MORNING, AND 50 AT NIGHT)
  2. FLAGYL [Suspect]
     Active Substance: METRONIDAZOLE\METRONIDAZOLE HYDROCHLORIDE
     Indication: DIVERTICULITIS
     Dosage: 500 MG, 3X/DAY (SUPPOSED TO TAKE FOR 5 DAYS EVERY 8 HOURS)
     Route: 048
     Dates: start: 20210315, end: 20210317

REACTIONS (4)
  - Headache [Not Recovered/Not Resolved]
  - Leukaemia [Unknown]
  - Hypertension [Unknown]
  - Heart rate increased [Unknown]

NARRATIVE: CASE EVENT DATE: 202103
